FAERS Safety Report 5840783-7 (Version None)
Quarter: 2008Q3

REPORT INFORMATION
  Report Type: 
  Country: None (occurrence: None)
  Receive Date: 20080730
  Receipt Date: 20080707
  Transmission Date: 20090109
  Serious: Yes (Other)
  Sender: FDA-Public Use
  Company Number: PHEH2008US04789

PATIENT
  Sex: Male

DRUGS (3)
  1. TEKTURNA [Suspect]
     Dosage: 150 MG; 300 MG
     Dates: end: 20080601
  2. TEKTURNA [Suspect]
     Dosage: 150 MG; 300 MG
     Dates: start: 20080401
  3. AMLODIPINE [Suspect]
     Dates: start: 20080601

REACTIONS (3)
  - DYSPHAGIA [None]
  - HYPERSENSITIVITY [None]
  - THROAT TIGHTNESS [None]
